FAERS Safety Report 6244489-4 (Version None)
Quarter: 2009Q2

REPORT INFORMATION
  Report Type: 
  Country: None (occurrence: None)
  Receive Date: 20090623
  Receipt Date: 20090609
  Transmission Date: 20091009
  Serious: Yes (Life-Threatening, Hospitalization, Other)
  Sender: FDA-Public Use
  Company Number: POMP-1000576

PATIENT
  Age: 8 Month
  Sex: Male
  Weight: 5.6 kg

DRUGS (22)
  1. MYOZYME [Suspect]
     Indication: GLYCOGEN STORAGE DISEASE TYPE II
     Dosage: 20 MG/KG, QOW, INTRAVENOUS ; 10 MG/KG, QW, INTRAVENOUS
     Route: 042
     Dates: start: 20090410
  2. MYOZYME [Suspect]
     Indication: GLYCOGEN STORAGE DISEASE TYPE II
     Dosage: 20 MG/KG, QOW, INTRAVENOUS ; 10 MG/KG, QW, INTRAVENOUS
     Route: 042
     Dates: start: 20090424
  3. MILRINONE LACTATE [Concomitant]
  4. FUROSEMIDE [Concomitant]
  5. CARVEDILOL [Concomitant]
  6. PIPERACILLIN SODIUM AND TAZOBACTAM SODIUM [Concomitant]
  7. DOBUTAMINE (DOBUTAMINE) [Concomitant]
  8. ATROPINE [Concomitant]
  9. ALBUMIN (HUMAN) [Concomitant]
  10. DOPAMINE HCL [Concomitant]
  11. CAPTOPRIL [Concomitant]
  12. HYDROCHLOROTHIAZIDE [Concomitant]
  13. RANITIDINE HYDROCHLORIDE [Concomitant]
  14. POTASSIUM (POTASSIUM CHLORIDE) [Concomitant]
  15. POLYVITAMIN (VITAMINS NOS) [Concomitant]
  16. ACETAMINOPHEN [Concomitant]
  17. ZINC OXIDE (ZINC OXIDE) [Concomitant]
  18. NYSTATIN [Concomitant]
  19. ENTERAL DIET NOS (ENTERAL DIET NOS) [Concomitant]
  20. CLONAZEPAM [Concomitant]
  21. VALPROIC ACID [Concomitant]
  22. TOPIRAMATE [Concomitant]

REACTIONS (16)
  - ATELECTASIS [None]
  - BLOOD CALCIUM DECREASED [None]
  - BLOOD PH INCREASED [None]
  - BLOOD SODIUM DECREASED [None]
  - BLOOD SODIUM INCREASED [None]
  - BRADYCARDIA [None]
  - CARDIOGENIC SHOCK [None]
  - CONVULSION [None]
  - DIARRHOEA [None]
  - ESCHERICHIA INFECTION [None]
  - INFANTILE SPASMS [None]
  - MYOCARDIAL INFARCTION [None]
  - PLEURAL EFFUSION [None]
  - PYREXIA [None]
  - RESPIRATORY FAILURE [None]
  - VENTRICULAR HYPOKINESIA [None]
